FAERS Safety Report 4445020-6 (Version None)
Quarter: 2004Q3

REPORT INFORMATION
  Report Type: 
  Country: None (occurrence: None)
  Receive Date: 20040907
  Receipt Date: 20040823
  Transmission Date: 20050211
  Serious: Yes (Other)
  Sender: FDA-Public Use
  Company Number: 2004050445

PATIENT
  Age: 76 Year
  Sex: Female

DRUGS (3)
  1. LIPITOR [Suspect]
     Indication: DYSLIPIDAEMIA
     Dosage: 20 MG (20 MG, 1 IN 1 D), ORAL
     Route: 048
     Dates: start: 20010501
  2. AMLODIPINE [Concomitant]
  3. DRUG UNSPECIFIED [Concomitant]

REACTIONS (2)
  - CAROTID ARTERY ATHEROMA [None]
  - DIZZINESS POSTURAL [None]
